FAERS Safety Report 15036096 (Version 1)
Quarter: 2018Q2

REPORT INFORMATION
  Report Type: Spontaneous
  Country: US (occurrence: US)
  Receive Date: 20180620
  Receipt Date: 20180620
  Transmission Date: 20180711
  Serious: Yes (Hospitalization)
  Sender: FDA-Public Use
  Company Number: US-BIOGEN-2010BI007546

PATIENT
  Age: 42 Year
  Sex: Female

DRUGS (1)
  1. TYSABRI [Suspect]
     Active Substance: NATALIZUMAB
     Indication: MULTIPLE SCLEROSIS
     Route: 042
     Dates: start: 20090601

REACTIONS (5)
  - Neurofibromatosis [Not Recovered/Not Resolved]
  - Immune system disorder [Unknown]
  - Neurofibroma [Recovered/Resolved]
  - Nuclear magnetic resonance imaging abnormal [Unknown]
  - Mass [Unknown]

NARRATIVE: CASE EVENT DATE: 200912
